FAERS Safety Report 25472451 (Version 1)
Quarter: 2025Q2

REPORT INFORMATION
  Report Type: Report from Study
  Country: FR (occurrence: FR)
  Receive Date: 20250624
  Receipt Date: 20250624
  Transmission Date: 20250717
  Serious: Yes (Other)
  Sender: KYOWA
  Company Number: FR-KYOWAKIRIN-2025KK011492

PATIENT

DRUGS (11)
  1. MOGAMULIZUMAB [Suspect]
     Active Substance: MOGAMULIZUMAB
     Indication: Cutaneous T-cell lymphoma
     Route: 042
     Dates: start: 20250417
  2. MOGAMULIZUMAB [Suspect]
     Active Substance: MOGAMULIZUMAB
     Route: 042
     Dates: start: 20250220
  3. MOGAMULIZUMAB [Suspect]
     Active Substance: MOGAMULIZUMAB
     Route: 042
     Dates: start: 20250228
  4. MOGAMULIZUMAB [Suspect]
     Active Substance: MOGAMULIZUMAB
     Route: 042
     Dates: start: 20250307
  5. MOGAMULIZUMAB [Suspect]
     Active Substance: MOGAMULIZUMAB
     Route: 042
     Dates: start: 20250314
  6. MOGAMULIZUMAB [Suspect]
     Active Substance: MOGAMULIZUMAB
     Route: 042
     Dates: start: 20250321
  7. MOGAMULIZUMAB [Suspect]
     Active Substance: MOGAMULIZUMAB
     Route: 042
     Dates: start: 20250403
  8. MOGAMULIZUMAB [Suspect]
     Active Substance: MOGAMULIZUMAB
     Route: 042
     Dates: start: 20250502
  9. MOGAMULIZUMAB [Suspect]
     Active Substance: MOGAMULIZUMAB
     Route: 042
     Dates: start: 20250515
  10. MOGAMULIZUMAB [Suspect]
     Active Substance: MOGAMULIZUMAB
     Route: 042
     Dates: start: 20250530
  11. MOGAMULIZUMAB [Suspect]
     Active Substance: MOGAMULIZUMAB
     Route: 042
     Dates: start: 20250612

REACTIONS (2)
  - Hepatic cytolysis [Recovered/Resolved]
  - Lymphocytosis [Recovered/Resolved]

NARRATIVE: CASE EVENT DATE: 20250415
